FAERS Safety Report 11677366 (Version 1)
Quarter: 2015Q4

REPORT INFORMATION
  Report Type: Spontaneous
  Country: US (occurrence: US)
  Receive Date: 20151027
  Receipt Date: 20151027
  Transmission Date: 20160304
  Serious: No
  Sender: FDA-Public Use
  Company Number: US-ELI_LILLY_AND_COMPANY-US201010002858

PATIENT
  Age: 57 Year
  Sex: Female

DRUGS (2)
  1. FORTEO [Suspect]
     Active Substance: TERIPARATIDE
     Indication: OSTEOPOROSIS
     Dosage: 20 UG, DAILY (1/D)
     Dates: start: 20100721, end: 20100730
  2. FORTEO [Suspect]
     Active Substance: TERIPARATIDE
     Dosage: 20 UG, DAILY (1/D)
     Dates: end: 20101002

REACTIONS (10)
  - Fatigue [Unknown]
  - Insomnia [Unknown]
  - Palpitations [Unknown]
  - Anxiety [Unknown]
  - Feeling abnormal [Unknown]
  - Hypertension [Recovering/Resolving]
  - Irritability [Unknown]
  - Pollakiuria [Unknown]
  - Hot flush [Unknown]
  - Nausea [Unknown]

NARRATIVE: CASE EVENT DATE: 20100730
